FAERS Safety Report 8763655 (Version 1)
Quarter: 2012Q4

REPORT INFORMATION
  Report Type: 
  Country: US (occurrence: US)
  Receive Date: 20120828
  Receipt Date: 20120828
  Transmission Date: 20130627
  Serious: Yes (Hospitalization)
  Sender: FDA-Public Use
  Company Number: US-FRI-1000038095

PATIENT
  Age: 75 Year
  Sex: Male

DRUGS (17)
  1. VIIBRYD [Suspect]
     Indication: DEPRESSION
     Dosage: 10 mg
     Route: 048
     Dates: start: 201206, end: 2012
  2. VIIBRYD [Suspect]
     Dosage: 20 mg
     Route: 048
     Dates: start: 2012, end: 20120722
  3. VIIBRYD [Suspect]
     Indication: DEPRESSION
     Dosage: 40 mg
     Route: 048
     Dates: start: 20120723, end: 2012
  4. LASIX [Concomitant]
  5. FENTANYL [Concomitant]
     Indication: PAIN
     Route: 061
  6. TRAZODONE [Concomitant]
  7. EFFEXOR [Concomitant]
     Indication: DEPRESSION
  8. WELLBUTRIN [Concomitant]
     Indication: DEPRESSION
  9. GEMFIBROZIL [Concomitant]
     Indication: HYPERLIPIDAEMIA
  10. GABAPENTIN [Concomitant]
  11. METOPROLOL [Concomitant]
     Indication: HYPERTENSION
  12. OXYBUTYNIN [Concomitant]
  13. OXYCODONE [Concomitant]
     Indication: PAIN
  14. TESTOSTERONE [Concomitant]
  15. ALENDRONATE [Concomitant]
  16. VITAMIN D [Concomitant]
  17. ASPIRIN [Concomitant]

REACTIONS (6)
  - Pulmonary embolism [Recovered/Resolved]
  - Thrombosis [Recovered/Resolved]
  - Deep vein thrombosis [Recovered/Resolved]
  - Loss of consciousness [Recovered/Resolved]
  - Dizziness [Recovered/Resolved]
  - Somnolence [Recovered/Resolved]
